FAERS Safety Report 18539708 (Version 1)
Quarter: 2020Q4

REPORT INFORMATION
  Report Type: Spontaneous
  Country: US (occurrence: US)
  Receive Date: 20201124
  Receipt Date: 20201124
  Transmission Date: 20210114
  Serious: No
  Sender: FDA-Public Use
  Company Number: US-KERYX BIOPHARMACEUTICALS INC.-2019US005864

PATIENT
  Sex: Male

DRUGS (3)
  1. AURYXIA [Suspect]
     Active Substance: TETRAFERRIC TRICITRATE DECAHYDRATE
     Indication: HYPERPHOSPHATAEMIA
     Dosage: 1 GRAM (TABLET), WITH EACH MEAL
     Route: 048
     Dates: start: 2019, end: 2019
  2. AURYXIA [Suspect]
     Active Substance: TETRAFERRIC TRICITRATE DECAHYDRATE
     Dosage: 2 GRAM (TABLETS), WITH EACH MEAL
     Route: 048
     Dates: start: 2019, end: 20191022
  3. GLUCOSE [Concomitant]
     Active Substance: DEXTROSE
     Indication: HYPERGLYCAEMIA
     Dosage: UNK
     Route: 048

REACTIONS (2)
  - Blood phosphorus increased [Unknown]
  - Hyperglycaemia [Recovered/Resolved]

NARRATIVE: CASE EVENT DATE: 2019
